FAERS Safety Report 16254811 (Version 1)
Quarter: 2019Q2

REPORT INFORMATION
  Report Type: Spontaneous
  Country: SI (occurrence: SI)
  Receive Date: 20190430
  Receipt Date: 20190430
  Transmission Date: 20190711
  Serious: Yes (Hospitalization)
  Sender: FDA-Public Use
  Company Number: SI-ACCORD-125173

PATIENT
  Age: 69 Year
  Sex: Male

DRUGS (6)
  1. TULIP [Concomitant]
     Dosage: STRENGTH : 10 MG
  2. ZOLEDRONIC ACID ACCORD [Suspect]
     Active Substance: ZOLEDRONIC ACID
     Indication: METASTASES TO BONE
     Dosage: 4MG/5ML CONCENTRATE FOR SOLUTION FOR INFUSION
     Route: 042
     Dates: start: 20190228, end: 20190228
  3. MAREVAN [Concomitant]
     Active Substance: WARFARIN SODIUM
     Dosage: ACCORDING TO THE SCHEME
  4. KATALIP [Concomitant]
     Active Substance: FENOFIBRATE
     Dosage: STRENGTH : 250 MG
  5. MEDROL [Concomitant]
     Active Substance: METHYLPREDNISOLONE
     Dosage: ACCORDING TO THE SCHEME
  6. LORISTA [Concomitant]
     Active Substance: LOSARTAN POTASSIUM
     Dosage: STRENGTH : 50 MG

REACTIONS (3)
  - Vertigo [Recovered/Resolved]
  - Nausea [Recovered/Resolved]
  - Vomiting [Recovered/Resolved]

NARRATIVE: CASE EVENT DATE: 20190228
